FAERS Safety Report 8430633-7 (Version None)
Quarter: 2012Q2

REPORT INFORMATION
  Report Type: 
  Country: None (occurrence: None)
  Receive Date: 20120612
  Receipt Date: 20120608
  Transmission Date: 20120825
  Serious: Yes (Other)
  Sender: FDA-Public Use
  Company Number: JP-PFIZER INC-2012105211

PATIENT
  Age: 61 Year
  Sex: Female
  Weight: 69 kg

DRUGS (5)
  1. MEILAX [Concomitant]
     Indication: ANXIOLYTIC THERAPY
     Dosage: 1 MG, 1X/DAY
     Route: 048
     Dates: start: 20120301
  2. HOCHUUEKKITOU [Concomitant]
     Dosage: 2.5 G, 3X/DAY
     Route: 048
     Dates: start: 20120423
  3. ZOLOFT [Suspect]
     Indication: PANIC ATTACK
     Dosage: 25 MG, 1X/DAY
     Route: 048
     Dates: start: 20120416, end: 20120426
  4. KEISHIBUKURYOUGAN [Concomitant]
     Dosage: 2.5 G, 3X/DAY
     Route: 048
     Dates: start: 20120426
  5. HANGEKOUBOKUTOU [Concomitant]
     Dosage: 2.5 G, 3X/DAY
     Route: 048
     Dates: start: 20120423

REACTIONS (5)
  - ALANINE AMINOTRANSFERASE INCREASED [None]
  - NEUROGENIC BLADDER [None]
  - BLOOD ALKALINE PHOSPHATASE INCREASED [None]
  - GAMMA-GLUTAMYLTRANSFERASE INCREASED [None]
  - C-REACTIVE PROTEIN INCREASED [None]
